FAERS Safety Report 5804726-4 (Version None)
Quarter: 2008Q3

REPORT INFORMATION
  Report Type: 
  Country: None (occurrence: None)
  Receive Date: 20080709
  Receipt Date: 20080701
  Transmission Date: 20090109
  Serious: Yes (Death, Other)
  Sender: FDA-Public Use
  Company Number: GB-BRISTOL-MYERS SQUIBB COMPANY-13904040

PATIENT
  Age: 25 Year
  Sex: Male

DRUGS (2)
  1. IFOSFAMIDE [Suspect]
     Indication: UNDIFFERENTIATED SARCOMA
     Dosage: DOSE/FORM:3.33 G/M2 STARTED ON APR1998-JUL1998
     Dates: start: 19980401, end: 20011101
  2. CISPLATIN [Suspect]
     Indication: UNDIFFERENTIATED SARCOMA
     Dosage: STARTED - APR1998-AUG2001.
     Route: 065
     Dates: start: 19980401, end: 20010801

REACTIONS (5)
  - DISEASE PROGRESSION [None]
  - FANCONI SYNDROME [None]
  - NEOPLASM MALIGNANT [None]
  - OSTEOMALACIA [None]
  - RENAL TUBULAR DISORDER [None]
